FAERS Safety Report 8570742-5 (Version None)
Quarter: 2012Q3

REPORT INFORMATION
  Report Type: 
  Country: None (occurrence: None)
  Receive Date: 20120805
  Receipt Date: 20120703
  Transmission Date: 20120928
  Serious: Yes (Other)
  Sender: FDA-Public Use
  Company Number: PHHY2012PT066252

PATIENT
  Age: 62 Year
  Sex: Male

DRUGS (4)
  1. SIROLIMUS [Concomitant]
     Dosage: UNK UKN, UNK
  2. AZATHIOPRINE [Concomitant]
     Dosage: UNK UKN, UNK
  3. CERTICAN [Suspect]
     Indication: NEPHROPATHY
     Dosage: 0.25 MG, BID
     Dates: start: 20101006
  4. PREDNISONE [Concomitant]
     Dosage: UNK UKN, UNK

REACTIONS (3)
  - HYPERCHOLESTEROLAEMIA [None]
  - HYPERTENSION [None]
  - LUNG NEOPLASM [None]
